FAERS Safety Report 14665196 (Version 2)
Quarter: 2018Q3

REPORT INFORMATION
  Report Type: Spontaneous
  Country: BR (occurrence: BR)
  Receive Date: 20180321
  Receipt Date: 20180827
  Transmission Date: 20181010
  Serious: Yes (Death, Other)
  Sender: FDA-Public Use
  Company Number: BR-BAYER-2018-052635

PATIENT
  Age: 64 Year
  Sex: Male

DRUGS (10)
  1. TAMARINE [Concomitant]
     Active Substance: HERBALS
  2. PLASIL [Concomitant]
     Active Substance: METOCLOPRAMIDE HYDROCHLORIDE
  3. ZOLADEX [Concomitant]
     Active Substance: GOSERELIN ACETATE
  4. TRAMADOLE [Concomitant]
     Active Substance: TRAMADOL HYDROCHLORIDE
  5. LACTULOSE. [Concomitant]
     Active Substance: LACTULOSE
  6. XOFIGO [Suspect]
     Active Substance: RADIUM RA-223 DICHLORIDE
     Indication: METASTASES TO BONE
     Dosage: 55,0 KBQ/KG
     Route: 042
     Dates: start: 20180223
  7. XOFIGO [Suspect]
     Active Substance: RADIUM RA-223 DICHLORIDE
     Indication: HORMONE-REFRACTORY PROSTATE CANCER
  8. DIPIRONA [Concomitant]
     Active Substance: METAMIZOLE
  9. AMLODIPINE [Concomitant]
     Active Substance: AMLODIPINE BESYLATE
  10. ONDANSETRON HYDROCHLORIDE. [Concomitant]
     Active Substance: ONDANSETRON HYDROCHLORIDE

REACTIONS (8)
  - Blood lactate dehydrogenase increased [Fatal]
  - Multiple organ dysfunction syndrome [Fatal]
  - Acute hepatic failure [Fatal]
  - Alanine aminotransferase increased [Fatal]
  - Aspartate aminotransferase increased [Fatal]
  - Prostatic specific antigen increased [None]
  - General physical health deterioration [None]
  - Blood alkaline phosphatase increased [Fatal]

NARRATIVE: CASE EVENT DATE: 20180304
